FAERS Safety Report 7085404-3 (Version None)
Quarter: 2010Q4

REPORT INFORMATION
  Report Type: 
  Country: None (occurrence: None)
  Receive Date: 20101105
  Receipt Date: 20101101
  Transmission Date: 20110411
  Serious: Yes (Other)
  Sender: FDA-Public Use
  Company Number: US-PFIZER INC-2010139381

PATIENT
  Sex: Female
  Weight: 66 kg

DRUGS (2)
  1. XALATAN [Suspect]
     Indication: GLAUCOMA
     Dosage: UNK
     Route: 047
  2. VITAMIN D [Concomitant]
     Dosage: 1000 MG, 1X/DAY
     Route: 048

REACTIONS (2)
  - EYE PAIN [None]
  - LUNG NEOPLASM MALIGNANT [None]
